FAERS Safety Report 8548872-3 (Version None)
Quarter: 2012Q2

REPORT INFORMATION
  Report Type: 
  Country: None (occurrence: None)
  Receive Date: 20120416
  Receipt Date: 20100305
  Transmission Date: 20120825
  Serious: Yes (Other)
  Sender: FDA-Public Use
  Company Number: PHHY2010US14134

PATIENT
  Sex: Male

DRUGS (4)
  1. CLONIDINE (CLONIDINE), 0.1 MG [Concomitant]
  2. ALOPROL, 20 MG [Concomitant]
  3. ANTIDIABETICS (NO INGREDIENTS/SUBSTANCES) [Concomitant]
  4. DIOVAN [Suspect]
     Dosage: 160 MG, UNKNOWN

REACTIONS (1)
  - HYPERTENSION [None]
